FAERS Safety Report 5206408-9 (Version None)
Quarter: 2006Q4

REPORT INFORMATION
  Report Type: 
  Country: None (occurrence: None)
  Receive Date: 20061026
  Receipt Date: 20060823
  Transmission Date: 20070319
  Serious: Yes (Other)
  Sender: FDA-Public Use
  Company Number: 2006104169

PATIENT
  Age: 40 Year
  Sex: Female
  Weight: 58.9676 kg

DRUGS (5)
  1. LYRICA [Suspect]
     Indication: PAIN
     Dosage: 300 MG (150 MG, 2 IN 1 D)
     Dates: start: 20060101
  2. PRILOSCE (OMEPRAZOLE) [Concomitant]
  3. REMERON [Concomitant]
  4. SOMA [Concomitant]
  5. CENTRUM (MINERALS NOS, VITAMINS NOS) [Concomitant]

REACTIONS (3)
  - GLYCOSYLATED HAEMOGLOBIN INCREASED [None]
  - OEDEMA PERIPHERAL [None]
  - WEIGHT INCREASED [None]
